FAERS Safety Report 8445741-4 (Version None)
Quarter: 2012Q2

REPORT INFORMATION
  Report Type: 
  Country: None (occurrence: None)
  Receive Date: 20120618
  Receipt Date: 20120608
  Transmission Date: 20120825
  Serious: Yes (Life-Threatening, Hospitalization)
  Sender: FDA-Public Use
  Company Number: DK-GLAXOSMITHKLINE-B0804968A

PATIENT
  Sex: Male

DRUGS (1)
  1. ZINACEF [Suspect]
     Indication: PRODUCT USED FOR UNKNOWN INDICATION
     Route: 042
     Dates: start: 20100510

REACTIONS (8)
  - CARDIAC DISORDER [None]
  - OXYGEN SATURATION DECREASED [None]
  - DRUG HYPERSENSITIVITY [None]
  - ANAPHYLACTIC SHOCK [None]
  - ARTHRALGIA [None]
  - BLOOD PRESSURE DECREASED [None]
  - FATIGUE [None]
  - ENDOTRACHEAL INTUBATION [None]
